FAERS Safety Report 15552510 (Version 3)
Quarter: 2019Q2

REPORT INFORMATION
  Report Type: Report from Study
  Country: US (occurrence: US)
  Receive Date: 20181025
  Receipt Date: 20190531
  Transmission Date: 20190711
  Serious: Yes (Hospitalization)
  Sender: FDA-Public Use
  Company Number: US-ACTELION-A-US2018-179126

PATIENT
  Sex: Male

DRUGS (2)
  1. OPSUMIT [Suspect]
     Active Substance: MACITENTAN
     Indication: PULMONARY ARTERIAL HYPERTENSION
     Dosage: 10 MG, QD
     Route: 048
     Dates: start: 20180102
  2. MIDODRINE [Concomitant]
     Active Substance: MIDODRINE

REACTIONS (7)
  - Eye operation [Unknown]
  - Hospitalisation [Unknown]
  - Migraine [Unknown]
  - Heart transplant [Unknown]
  - Cardiac disorder [Unknown]
  - Blood pressure fluctuation [Unknown]
  - Dizziness [Unknown]
